FAERS Safety Report 4409282-3 (Version None)
Quarter: 2004Q3

REPORT INFORMATION
  Report Type: 
  Country: None (occurrence: None)
  Receive Date: 20040728
  Receipt Date: 20030814
  Transmission Date: 20050211
  Serious: Yes (Death, Hospitalization, Other)
  Sender: FDA-Public Use
  Company Number: US-MERCK-0308USA01519

PATIENT
  Age: 78 Year
  Sex: Female

DRUGS (14)
  1. CAPTOPRIL [Concomitant]
     Route: 065
  2. CELEBREX [Concomitant]
     Route: 065
     Dates: end: 20000501
  3. PLAVIX [Concomitant]
     Route: 065
  4. PEPCID AC [Concomitant]
     Route: 048
  5. LASIX [Concomitant]
     Route: 065
  6. GLYBURIDE [Concomitant]
     Route: 065
  7. SYNTHROID [Concomitant]
     Route: 065
     Dates: start: 19981201
  8. LORAZEPAM [Concomitant]
     Route: 065
  9. MECLIZINE [Concomitant]
     Route: 065
  10. PHENERGAN TABLETS/SUPPOSITORIES [Concomitant]
     Route: 065
  11. VIOXX [Suspect]
     Indication: PAIN
     Route: 048
     Dates: start: 20000318, end: 20000101
  12. VIOXX [Suspect]
     Route: 048
     Dates: start: 20001213
  13. ZOLOFT [Concomitant]
     Route: 065
  14. AMBIEN [Concomitant]
     Route: 065

REACTIONS (30)
  - CARDIAC ARREST [None]
  - CARDIAC FAILURE CONGESTIVE [None]
  - CHOLECYSTITIS [None]
  - CHOLELITHIASIS [None]
  - CHRONIC OBSTRUCTIVE AIRWAYS DISEASE EXACERBATED [None]
  - COMA [None]
  - CORONARY ARTERY DISEASE [None]
  - DEPRESSED LEVEL OF CONSCIOUSNESS [None]
  - DIABETES MELLITUS INADEQUATE CONTROL [None]
  - DIZZINESS [None]
  - DYSPEPSIA [None]
  - DYSPNOEA [None]
  - EPIGASTRIC DISCOMFORT [None]
  - GASTRITIS [None]
  - GASTROINTESTINAL HAEMORRHAGE [None]
  - HYPERHIDROSIS [None]
  - HYPERKALAEMIA [None]
  - MICROCYTIC ANAEMIA [None]
  - MYOCARDIAL INFARCTION [None]
  - NAUSEA [None]
  - OEDEMA PERIPHERAL [None]
  - PALLOR [None]
  - PULMONARY OEDEMA [None]
  - PUPILLARY REFLEX IMPAIRED [None]
  - RALES [None]
  - RENAL FAILURE [None]
  - RESPIRATORY DEPRESSION [None]
  - RESPIRATORY DISTRESS [None]
  - VOMITING [None]
  - WHEEZING [None]
